FAERS Safety Report 7406138-9 (Version None)
Quarter: 2011Q2

REPORT INFORMATION
  Report Type: 
  Country: None (occurrence: None)
  Receive Date: 20110411
  Receipt Date: 20110224
  Transmission Date: 20111010
  Serious: No
  Sender: FDA-Public Use
  Company Number: US-AMGEN-USASP2011005052

PATIENT
  Age: 64 Year
  Sex: Female

DRUGS (3)
  1. VECTIBIX [Suspect]
     Indication: COLON CANCER METASTATIC
     Dosage: UNK UNK, Q2WK
     Dates: start: 20100101
  2. SYNTHROID [Concomitant]
  3. ATENOLOL [Concomitant]
     Dosage: 1 MG, QD
     Dates: start: 20100101

REACTIONS (9)
  - DRY EYE [None]
  - DRY SKIN [None]
  - RHINORRHOEA [None]
  - ALOPECIA [None]
  - RASH [None]
  - NASAL OEDEMA [None]
  - EYELASH THICKENING [None]
  - NASAL DRYNESS [None]
  - ERYTHEMA [None]
